FAERS Safety Report 12707290 (Version 2)
Quarter: 2016Q4

REPORT INFORMATION
  Report Type: Spontaneous
  Country: US (occurrence: US)
  Receive Date: 20160901
  Receipt Date: 20161121
  Transmission Date: 20170207
  Serious: Yes (Hospitalization, Disabling, Other)
  Sender: FDA-Public Use
  Company Number: US-PFIZER INC-2016412902

PATIENT
  Age: 60 Year
  Sex: Male

DRUGS (2)
  1. DEPO-TESTOSTERONE [Suspect]
     Active Substance: TESTOSTERONE CYPIONATE
     Indication: HORMONE REPLACEMENT THERAPY
     Dosage: 2 DF, UNK (2 INJECTIONS)
     Dates: start: 20150312, end: 20150325
  2. DEPO-TESTOSTERONE [Suspect]
     Active Substance: TESTOSTERONE CYPIONATE
     Indication: ASTHENIA

REACTIONS (10)
  - Activities of daily living impaired [Not Recovered/Not Resolved]
  - Balance disorder [Unknown]
  - Depression [Not Recovered/Not Resolved]
  - Cerebrovascular accident [Unknown]
  - Visual impairment [Unknown]
  - Decreased appetite [Unknown]
  - Asthenia [Unknown]
  - Impaired driving ability [Unknown]
  - Blindness [Not Recovered/Not Resolved]
  - Memory impairment [Not Recovered/Not Resolved]

NARRATIVE: CASE EVENT DATE: 20150330
